FAERS Safety Report 9232317 (Version 3)
Quarter: 2014Q1

REPORT INFORMATION
  Report Type: Spontaneous
  Country: US (occurrence: US)
  Receive Date: 20130416
  Receipt Date: 20140312
  Transmission Date: 20141002
  Serious: Yes (Other)
  Sender: FDA-Public Use
  Company Number: US-AMGEN-USASP2013025089

PATIENT
  Age: 66 Year
  Sex: Female

DRUGS (1)
  1. PROLIA [Suspect]
     Indication: OSTEOPOROSIS POSTMENOPAUSAL
     Dosage: UNK UNK, Q6MO
     Route: 065
     Dates: start: 201303

REACTIONS (8)
  - Hip fracture [Unknown]
  - Flight of ideas [Unknown]
  - Logorrhoea [Unknown]
  - Ill-defined disorder [Unknown]
  - Malaise [Unknown]
  - Middle insomnia [Unknown]
  - Quality of life decreased [Unknown]
  - Bone pain [Not Recovered/Not Resolved]
